FAERS Safety Report 19980547 (Version 1)
Quarter: 2021Q4

REPORT INFORMATION
  Report Type: Spontaneous
  Country: US (occurrence: US)
  Receive Date: 20211021
  Receipt Date: 20211021
  Transmission Date: 20220303
  Serious: Yes (Hospitalization, Disabling, Other)
  Sender: FDA-Public Use
  Company Number: US-ELI_LILLY_AND_COMPANY-US202110003870

PATIENT
  Age: 66 Year
  Sex: Male

DRUGS (2)
  1. BASAGLAR [Suspect]
     Active Substance: INSULIN GLARGINE
     Indication: Product used for unknown indication
     Dosage: UNK, UNKNOWN
     Route: 058
     Dates: start: 2018
  2. NOVOLOG [Suspect]
     Active Substance: INSULIN ASPART
     Indication: Product used for unknown indication
     Dosage: 90 INTERNATIONAL UNIT, DAILY
     Route: 058
     Dates: start: 2016

REACTIONS (7)
  - Cardiac failure congestive [Recovered/Resolved]
  - Myocardial infarction [Recovered/Resolved]
  - Chronic kidney disease [Not Recovered/Not Resolved]
  - Blindness unilateral [Not Recovered/Not Resolved]
  - Glaucoma [Not Recovered/Not Resolved]
  - Postoperative wound infection [Unknown]
  - Device related infection [Unknown]

NARRATIVE: CASE EVENT DATE: 20190101
